FAERS Safety Report 7205769-9 (Version None)
Quarter: 2010Q4

REPORT INFORMATION
  Report Type: 
  Country: None (occurrence: None)
  Receive Date: 20101231
  Receipt Date: 20101220
  Transmission Date: 20110411
  Serious: Yes (Other)
  Sender: FDA-Public Use
  Company Number: CHPA2010FR13748

PATIENT
  Sex: Female

DRUGS (2)
  1. SCOPOLAMINE [Suspect]
     Indication: MOTION SICKNESS
     Dosage: 1 MG, Q72H PRN
     Route: 062
     Dates: start: 20100716, end: 20100717
  2. DIFFU K [Concomitant]
     Indication: HYPOKALAEMIA
     Dosage: 4 CAPSULES, QD
     Route: 048
     Dates: start: 20080101

REACTIONS (7)
  - CAESAREAN SECTION [None]
  - DIPLOPIA [None]
  - DRUG EXPOSURE DURING PREGNANCY [None]
  - DRUG INEFFECTIVE [None]
  - DRY MOUTH [None]
  - NORMAL NEWBORN [None]
  - PRE-ECLAMPSIA [None]
